FAERS Safety Report 14357763 (Version 4)
Quarter: 2018Q2

REPORT INFORMATION
  Report Type: Report from Study
  Country: US (occurrence: US)
  Receive Date: 20180105
  Receipt Date: 20180413
  Transmission Date: 20180711
  Serious: Yes (Hospitalization, Other)
  Sender: FDA-Public Use
  Company Number: US-BRISTOL-MYERS SQUIBB COMPANY-BMS-2017-119172

PATIENT
  Age: 75 Year
  Sex: Male
  Weight: 99.5 kg

DRUGS (4)
  1. NIVOLUMAB [Suspect]
     Active Substance: NIVOLUMAB
     Indication: COLON CANCER
     Dosage: 240 MG, UNK
     Route: 042
     Dates: start: 20170510, end: 20170913
  2. PREDNISONE. [Suspect]
     Active Substance: PREDNISONE
     Indication: COLON CANCER
     Route: 065
  3. INFLIXIMAB [Suspect]
     Active Substance: INFLIXIMAB
     Indication: COLON CANCER
     Route: 065
  4. IPILIMUMAB [Suspect]
     Active Substance: IPILIMUMAB
     Indication: COLON CANCER
     Dosage: 1 MG/KG, UNK
     Route: 042
     Dates: start: 20170510, end: 20170913

REACTIONS (9)
  - Arthralgia [Recovered/Resolved]
  - Enterocolitis [Unknown]
  - Hyponatraemia [Recovered/Resolved]
  - Fatigue [Unknown]
  - Dehydration [Unknown]
  - Diarrhoea [Unknown]
  - Hyperglycaemia [Recovered/Resolved]
  - Urinary tract infection [Unknown]
  - Muscular weakness [Recovered/Resolved]

NARRATIVE: CASE EVENT DATE: 20170925
